FAERS Safety Report 20379754 (Version 2)
Quarter: 2022Q1

REPORT INFORMATION
  Report Type: Spontaneous
  Country: JP (occurrence: JP)
  Receive Date: 20220126
  Receipt Date: 20220331
  Transmission Date: 20220423
  Serious: Yes (Death, Hospitalization, Other)
  Sender: FDA-Public Use
  Company Number: JP-ELI_LILLY_AND_COMPANY-JP202201009440

PATIENT
  Age: 74 Year
  Sex: Female

DRUGS (10)
  1. ADCIRCA [Suspect]
     Active Substance: TADALAFIL
     Indication: Product used for unknown indication
     Dosage: 40 MG, DAILY
     Route: 048
     Dates: start: 20180307, end: 20190702
  2. OPSUMIT [Concomitant]
     Active Substance: MACITENTAN
     Dosage: 10 MG, UNKNOWN
     Route: 065
  3. ELIQUIS [Concomitant]
     Active Substance: APIXABAN
     Dosage: 10 MG, UNKNOWN
     Route: 065
  4. BISOPROLOL FUMARATE [Concomitant]
     Active Substance: BISOPROLOL FUMARATE
     Dosage: 5 MG, UNKNOWN
     Route: 065
  5. SAMSCA [Concomitant]
     Active Substance: TOLVAPTAN
     Dosage: 7.5 MG, UNKNOWN
     Route: 065
  6. FUROSEMIDE [Concomitant]
     Active Substance: FUROSEMIDE
     Dosage: UNK, UNKNOWN
     Route: 065
  7. FEBUXOSTAT [Concomitant]
     Active Substance: FEBUXOSTAT
     Dosage: 20 MG, UNKNOWN
     Route: 065
  8. SPIRONOLACTONE [Concomitant]
     Active Substance: SPIRONOLACTONE
     Dosage: 50 MG, UNKNOWN
     Route: 065
  9. FERROUS FUMARATE [Concomitant]
     Active Substance: FERROUS FUMARATE
     Dosage: 100 MG, UNKNOWN
     Route: 065
  10. ROZEREM [Concomitant]
     Active Substance: RAMELTEON
     Dosage: 8 MG, UNKNOWN
     Route: 065

REACTIONS (2)
  - Cardiac failure [Fatal]
  - Pneumonia [Unknown]

NARRATIVE: CASE EVENT DATE: 20190601
